FAERS Safety Report 21536709 (Version 3)
Quarter: 2022Q4

REPORT INFORMATION
  Report Type: Report from Study
  Country: DE (occurrence: DE)
  Receive Date: 20221101
  Receipt Date: 20221129
  Transmission Date: 20230113
  Serious: Yes (Hospitalization, Other)
  Sender: FDA-Public Use
  Company Number: DE-BRISTOL-MYERS SQUIBB COMPANY-2022-113541

PATIENT
  Age: 31 Year
  Sex: Male
  Weight: 71 kg

DRUGS (18)
  1. AZACITIDINE [Suspect]
     Active Substance: AZACITIDINE
     Indication: Pancreatic carcinoma
     Route: 058
     Dates: start: 20220822, end: 20220927
  2. PACLITAXEL [Suspect]
     Active Substance: PACLITAXEL
     Indication: Pancreatic carcinoma
     Route: 042
     Dates: start: 20220830, end: 20220913
  3. PACLITAXEL [Suspect]
     Active Substance: PACLITAXEL
     Dosage: 241.1 MILLIGRAMS / DAY (125 MILLIGRAM/M?, D1, D8, D15) IN CYCLE 2
     Route: 042
     Dates: start: 20221006
  4. GEMCITABINE [Suspect]
     Active Substance: GEMCITABINE
     Indication: Pancreatic carcinoma
     Route: 042
     Dates: start: 20220830, end: 20220913
  5. METAMIZOLE [Concomitant]
     Active Substance: METAMIZOLE
     Indication: Pain
     Route: 048
  6. DIMETHICONE [Concomitant]
     Active Substance: DIMETHICONE
     Indication: Product used for unknown indication
     Dosage: FREQUENCY: AS NEEDED.
     Route: 048
     Dates: start: 20220830
  7. OXYCODONE [Concomitant]
     Active Substance: OXYCODONE
     Indication: Pain
     Dosage: FREQUENCY: AS NEEDED
     Route: 048
  8. LACTULOSE [Concomitant]
     Active Substance: LACTULOSE
     Indication: Constipation prophylaxis
     Route: 048
  9. MOVICOL [Concomitant]
     Active Substance: POLYETHYLENE GLYCOL 3350\POTASSIUM CHLORIDE\SODIUM BICARBONATE\SODIUM CHLORIDE
     Indication: Constipation prophylaxis
     Route: 048
     Dates: start: 20220506
  10. FRESUBIN [Concomitant]
     Active Substance: AMINO ACIDS\DEXTROSE\ELECTROLYTES NOS\SOYBEAN OIL\VITAMINS
     Indication: Nutritional supplementation
     Dosage: FREQUENCY: AS NEEDED.
     Route: 048
     Dates: start: 20220822
  11. FRESUBIN [Concomitant]
     Active Substance: AMINO ACIDS\DEXTROSE\ELECTROLYTES NOS\SOYBEAN OIL\VITAMINS
     Dosage: FREQUENCY: AS NEEDED
     Route: 048
     Dates: start: 20220825
  12. MEROPENEM [Concomitant]
     Active Substance: MEROPENEM
     Indication: Pancreas infection
     Route: 042
     Dates: start: 20220915, end: 20220920
  13. PANTOPRAZOLE [Concomitant]
     Active Substance: PANTOPRAZOLE
     Indication: Prophylaxis
     Route: 048
     Dates: start: 20220916
  14. ENOXAPARIN SODIUM [Concomitant]
     Active Substance: ENOXAPARIN SODIUM
     Indication: Anticoagulant therapy
     Route: 058
     Dates: start: 20220921
  15. ENOXAPARIN SODIUM [Concomitant]
     Active Substance: ENOXAPARIN SODIUM
     Indication: Thrombosis
  16. paspertin [Concomitant]
     Indication: Abdominal tenderness
     Dosage: AS NEEDED
     Route: 048
     Dates: start: 20220919
  17. DULCOLAX NOS [Concomitant]
     Active Substance: BISACODYL OR DOCUSATE SODIUM
     Indication: Constipation
     Route: 048
     Dates: start: 20220919
  18. AMOXICILLIN\CLAVULANATE POTASSIUM [Concomitant]
     Active Substance: AMOXICILLIN\CLAVULANATE POTASSIUM
     Indication: Pancreas infection
     Dosage: 500/125 MG
     Route: 048
     Dates: start: 20220921, end: 20220925

REACTIONS (1)
  - Pancreas infection [Recovered/Resolved]

NARRATIVE: CASE EVENT DATE: 20220927
